FAERS Safety Report 5500131-9 (Version None)
Quarter: 2007Q4

REPORT INFORMATION
  Report Type: 
  Country: None (occurrence: None)
  Receive Date: 20071025
  Receipt Date: 20071017
  Transmission Date: 20080405
  Serious: Yes (Hospitalization)
  Sender: FDA-Public Use
  Company Number: 2007-04679

PATIENT
  Age: 79 Year
  Sex: Male

DRUGS (8)
  1. COLCHICUM JTL LIQ [Suspect]
     Indication: GOUT
     Dosage: ORAL
     Route: 048
  2. DILTIAZEM [Concomitant]
  3. VALACYCLOVIR [Concomitant]
  4. NICORANDIL (NICORANDIL) [Concomitant]
  5. BISOPROLOL FUMARATE [Concomitant]
  6. DEFEROSIROX [Concomitant]
  7. FRUSEMIDE [Concomitant]
  8. GLYCERYL TRINITRATE (GLYCERYL TRINITRATE) PATCH [Concomitant]

REACTIONS (1)
  - PANCREATITIS ACUTE [None]
